FAERS Safety Report 17961583 (Version 2)
Quarter: 2020Q3

REPORT INFORMATION
  Report Type: Spontaneous
  Country: US (occurrence: US)
  Receive Date: 20200630
  Receipt Date: 20200801
  Transmission Date: 20201103
  Serious: No
  Sender: FDA-Public Use
  Company Number: US-UNITED THERAPEUTICS-UNT-2020-006980

PATIENT
  Age: 48 Year
  Sex: Female

DRUGS (3)
  1. REMODULIN [Suspect]
     Active Substance: TREPROSTINIL
     Indication: PULMONARY ARTERIAL HYPERTENSION
     Dosage: UNK, CONTINUING
     Route: 058
     Dates: start: 20200403
  2. REMODULIN [Suspect]
     Active Substance: TREPROSTINIL
     Dosage: 0.007 ?G/KG, CONTINUING
     Route: 058
  3. REMODULIN [Suspect]
     Active Substance: TREPROSTINIL
     Dosage: 0.00825 ?G/KG, CONTINUING
     Route: 058
     Dates: start: 20200430

REACTIONS (8)
  - Headache [Recovered/Resolved]
  - Infusion site pain [Not Recovered/Not Resolved]
  - Urticaria [Unknown]
  - Rash [Unknown]
  - Flushing [Unknown]
  - Migraine [Unknown]
  - Dermatitis contact [Unknown]
  - Dizziness postural [Not Recovered/Not Resolved]

NARRATIVE: CASE EVENT DATE: 2020
